FAERS Safety Report 25583479 (Version 3)
Quarter: 2025Q4

REPORT INFORMATION
  Report Type: Spontaneous
  Country: JO (occurrence: JO)
  Receive Date: 20250721
  Receipt Date: 20251008
  Transmission Date: 20260117
  Serious: Yes (Other)
  Sender: IPSEN BIOPHARMACEUTICALS, INC.
  Company Number: JO-IPSEN Group, Research and Development-2025-16207

PATIENT
  Sex: Female

DRUGS (3)
  1. DYSPORT [Suspect]
     Active Substance: ABOBOTULINUMTOXINA
     Indication: Skin wrinkling
     Dates: start: 20250525, end: 20250525
  2. DYSPORT [Suspect]
     Active Substance: ABOBOTULINUMTOXINA
     Indication: Skin wrinkling
  3. DYSPORT [Suspect]
     Active Substance: ABOBOTULINUMTOXINA
     Indication: Off label use

REACTIONS (14)
  - Punctate keratitis [Unknown]
  - Facial paralysis [Unknown]
  - Dry eye [Recovering/Resolving]
  - Brow ptosis [Recovering/Resolving]
  - Headache [Recovering/Resolving]
  - Off label use [Unknown]
  - Asthenopia [Unknown]
  - Keratitis [Unknown]
  - Ocular discomfort [Unknown]
  - Corneal reflex decreased [Unknown]
  - Facial discomfort [Unknown]
  - Periorbital swelling [Unknown]
  - Tension headache [Unknown]
  - Off label use [Unknown]

NARRATIVE: CASE EVENT DATE: 20250603
